FAERS Safety Report 6957663-6 (Version None)
Quarter: 2010Q3

REPORT INFORMATION
  Report Type: 
  Country: None (occurrence: None)
  Receive Date: 20100831
  Receipt Date: 20100816
  Transmission Date: 20110219
  Serious: Yes (Hospitalization, Other)
  Sender: FDA-Public Use
  Company Number: PHHY2010JP41338

PATIENT
  Sex: Male
  Weight: 71 kg

DRUGS (7)
  1. DIOVAN [Suspect]
     Indication: HYPERTENSION
     Dosage: 40 MG ONCE DAILY
     Route: 048
     Dates: start: 20071023
  2. AMLODIPINE BESYLATE [Concomitant]
     Dosage: 5 MG DAILY
     Route: 048
     Dates: start: 20090623
  3. AMLODIPINE BESYLATE [Concomitant]
     Dosage: 2.5 MG DAILY
     Route: 048
     Dates: end: 20100618
  4. FRANDOL [Concomitant]
     Dosage: 40 MG
     Route: 048
     Dates: start: 20050701
  5. SIGMART [Concomitant]
     Dosage: 15 MG
     Route: 048
     Dates: start: 20060701
  6. ANPLAG [Concomitant]
     Dosage: 300 MG
     Route: 048
     Dates: start: 20100622
  7. MUCOSTA [Concomitant]
     Dosage: 300 MG
     Route: 048
     Dates: start: 20090623

REACTIONS (5)
  - ARTERIOSCLEROSIS OBLITERANS [None]
  - BLOOD CREATINE PHOSPHOKINASE INCREASED [None]
  - DEHYDRATION [None]
  - MUSCLE SPASMS [None]
  - RHABDOMYOLYSIS [None]
